FAERS Safety Report 15806501 (Version 1)
Quarter: 2019Q1

REPORT INFORMATION
  Report Type: Other
  Country: US (occurrence: BE)
  Receive Date: 20190110
  Receipt Date: 20190110
  Transmission Date: 20190417
  Serious: Yes (Other)
  Sender: FDA-Public Use
  Company Number: BE-BRECKENRIDGE PHARMACEUTICAL, INC.-2061041

PATIENT
  Age: 12 Year
  Sex: Female

DRUGS (1)
  1. OMEPRAZOLE. [Suspect]
     Active Substance: OMEPRAZOLE

REACTIONS (3)
  - Acute psychosis [Recovered/Resolved]
  - Thinking abnormal [Recovered/Resolved]
  - Delusional disorder, unspecified type [Recovered/Resolved]
